FAERS Safety Report 6288720-8 (Version None)
Quarter: 2009Q3

REPORT INFORMATION
  Report Type: 
  Country: None (occurrence: None)
  Receive Date: 20090729
  Receipt Date: 20090720
  Transmission Date: 20100115
  Serious: Yes (Other)
  Sender: FDA-Public Use
  Company Number: PHEH2009US05926

PATIENT
  Sex: Female
  Weight: 71.837 kg

DRUGS (10)
  1. RECLAST [Suspect]
     Indication: OSTEOPOROSIS
     Dosage: 5 MG, YEARLY
     Dates: start: 20090602
  2. RECLAST [Suspect]
     Indication: OSTEOPENIA
  3. LEXAPRO [Concomitant]
     Indication: DEPRESSION
     Dosage: 10 MG, QOD
     Route: 048
  4. ESTRADIOL [Concomitant]
     Indication: POSTMENOPAUSE
     Dosage: 2 MG, QD
     Route: 048
  5. NAPROXEN [Concomitant]
     Indication: ARTHRALGIA
     Dosage: 1-2, QW PRN
     Route: 048
  6. OMEPRAZOLE [Concomitant]
     Indication: GASTROOESOPHAGEAL REFLUX DISEASE
     Dosage: 20 MG, QD
     Route: 048
  7. IBUPROFEN [Concomitant]
     Indication: ARTHRALGIA
     Dosage: 600 MG, BID TO TID PRN
     Route: 048
  8. CALCIUM [Concomitant]
     Indication: OSTEOPOROSIS
     Dosage: UNK, QD
     Route: 048
  9. VITAMIN D [Concomitant]
     Indication: OSTEOPOROSIS
     Dosage: 2000, QD
     Route: 048
  10. NASONEX [Concomitant]
     Indication: MULTIPLE ALLERGIES
     Dosage: 2 SPRAYS, QD
     Route: 045

REACTIONS (19)
  - ARTHRALGIA [None]
  - ATRIOVENTRICULAR BLOCK FIRST DEGREE [None]
  - BLOOD GLUCOSE INCREASED [None]
  - BONE PAIN [None]
  - CHEST PAIN [None]
  - COLD SWEAT [None]
  - COUGH [None]
  - DYSPNOEA [None]
  - FEELING HOT [None]
  - HEADACHE [None]
  - MALAISE [None]
  - MUSCULOSKELETAL PAIN [None]
  - MYALGIA [None]
  - NAUSEA [None]
  - PAIN [None]
  - PAIN IN JAW [None]
  - PALPITATIONS [None]
  - SLEEP DISORDER [None]
  - SUPRAVENTRICULAR EXTRASYSTOLES [None]
